FAERS Safety Report 5073000-9 (Version None)
Quarter: 2006Q3

REPORT INFORMATION
  Report Type: 
  Country: None (occurrence: None)
  Receive Date: 20060802
  Receipt Date: 20060721
  Transmission Date: 20061208
  Serious: Yes (Life-Threatening, Hospitalization)
  Sender: FDA-Public Use
  Company Number: 2006089639

PATIENT
  Age: 70 Year
  Sex: Male

DRUGS (11)
  1. CABERGOLINE [Suspect]
     Indication: PARKINSON'S DISEASE
     Dosage: 1 MG (0.25 MG,4 IN 1 D), ORAL
     Route: 048
     Dates: end: 20060706
  2. CARBIDOPA AND LEVODOPA [Concomitant]
  3. GASMOTIN                      (MOSAPRIDE CITRATE) [Concomitant]
  4. ARTANE [Concomitant]
  5. DOPS            (DROXIPODA) [Concomitant]
  6. SYMMETREL [Concomitant]
  7. SELBEX (TEPRENONE) [Concomitant]
  8. SELEGILINE HYDROCHLORIDE [Concomitant]
  9. NAUZELIN (DOMPERIDONE) [Concomitant]
  10. SEROQUEL [Concomitant]
  11. SENNOSIDE A+B [Concomitant]

REACTIONS (5)
  - ASPIRATION [None]
  - DYSPHAGIA [None]
  - INTERSTITIAL LUNG DISEASE [None]
  - LUNG DISORDER [None]
  - PLEURAL EFFUSION [None]
